FAERS Safety Report 9049221 (Version 2)
Quarter: 2013Q1

REPORT INFORMATION
  Report Type: Spontaneous
  Country: JP (occurrence: JP)
  Receive Date: 20130205
  Receipt Date: 20130220
  Transmission Date: 20140127
  Serious: Yes (Other)
  Sender: FDA-Public Use
  Company Number: JP-ROCHE-1184370

PATIENT
  Age: 72 Year
  Sex: Male

DRUGS (2)
  1. ACTEMRA [Suspect]
     Indication: RHEUMATOID VASCULITIS
     Dosage: DOSAGE IS UNCERTAIN.
     Route: 041
     Dates: end: 201203
  2. ACTEMRA [Suspect]
     Indication: RHEUMATOID VASCULITIS
     Dosage: DOSAGE IS UNCERTAIN.
     Route: 041

REACTIONS (2)
  - Pneumonia pneumococcal [Recovering/Resolving]
  - Organising pneumonia [Recovering/Resolving]
